FAERS Safety Report 5740401-2 (Version None)
Quarter: 2008Q2

REPORT INFORMATION
  Report Type: 
  Country: None (occurrence: None)
  Receive Date: 20080516
  Receipt Date: 20080509
  Transmission Date: 20081010
  Serious: Yes (Death)
  Sender: FDA-Public Use
  Company Number: US-PURDUE-USA_2007_0030694

PATIENT
  Age: 4 Week
  Sex: Female

DRUGS (2)
  1. OXYCONTIN [Suspect]
     Indication: ACCIDENTAL EXPOSURE
     Dosage: UNK MG, UNK
     Route: 048
  2. CITALOPRAM HYDROBROMIDE [Suspect]
     Indication: ACCIDENTAL EXPOSURE
     Dosage: UNK MG, UNK
     Route: 048

REACTIONS (6)
  - DEATH NEONATAL [None]
  - DEHYDRATION [None]
  - INFANTILE APNOEIC ATTACK [None]
  - MULTIPLE DRUG OVERDOSE [None]
  - SUDDEN INFANT DEATH SYNDROME [None]
  - UNEVALUABLE EVENT [None]
